FAERS Safety Report 26060513 (Version 1)
Quarter: 2025Q4

REPORT INFORMATION
  Report Type: Spontaneous
  Country: PR (occurrence: None)
  Receive Date: 20251118
  Receipt Date: 20251118
  Transmission Date: 20260118
  Serious: No
  Sender: FDA-CTU
  Company Number: None

PATIENT
  Age: 30 Year
  Sex: Male
  Weight: 129.73 kg

DRUGS (7)
  1. CORTICOTROPIN [Suspect]
     Active Substance: CORTICOTROPIN
     Indication: Systemic lupus erythematosus
     Dosage: FREQUENCY : EVERY OTHER DAY;?
     Dates: start: 20250514
  2. CellCept Oral Tablet 500 MG [Concomitant]
  3. Carvedilol Oral Tablet 6.25 MG [Concomitant]
  4. Procardia Oral Capsule 10 MG [Concomitant]
  5. Lisinopril Oral Tablet 40 MG [Concomitant]
  6. Lisinopril Oral Tablet 40 MG [Concomitant]
  7. predniSONE Oral Tablet 10 MG [Concomitant]

REACTIONS (2)
  - Therapeutic response changed [None]
  - Anxiety [None]

NARRATIVE: CASE EVENT DATE: 20251118
